FAERS Safety Report 24422444 (Version 2)
Quarter: 2024Q4

REPORT INFORMATION
  Report Type: Spontaneous
  Country: CO (occurrence: CO)
  Receive Date: 20241010
  Receipt Date: 20241129
  Transmission Date: 20250115
  Serious: Yes (Hospitalization)
  Sender: SANDOZ
  Company Number: CO-002147023-NVSC2024CO198464

PATIENT
  Age: 82 Year
  Sex: Male
  Weight: 77 kg

DRUGS (1)
  1. EXELON [Suspect]
     Active Substance: RIVASTIGMINE TARTRATE
     Indication: Dementia Alzheimer^s type
     Dosage: 1 DOSAGE FORM, QD (9MG PARCH)
     Route: 062
     Dates: start: 20240420

REACTIONS (6)
  - Pyrexia [Recovering/Resolving]
  - Malaise [Recovering/Resolving]
  - Urinary tract infection [Recovering/Resolving]
  - Oedema peripheral [Not Recovered/Not Resolved]
  - Pollakiuria [Not Recovered/Not Resolved]
  - Aggression [Not Recovered/Not Resolved]

NARRATIVE: CASE EVENT DATE: 20240926
